FAERS Safety Report 5643040-7 (Version None)
Quarter: 2008Q1

REPORT INFORMATION
  Report Type: 
  Country: None (occurrence: None)
  Receive Date: 20080226
  Receipt Date: 20080215
  Transmission Date: 20080703
  Serious: Yes (Disabling, Other)
  Sender: FDA-Public Use
  Company Number: 2004-09-0314

PATIENT
  Age: 11 Week
  Sex: Female

DRUGS (1)
  1. INTRON A [Suspect]
     Indication: HAEMANGIOMA
     Dosage: 1.2 MIU
     Dates: start: 19931209, end: 19940706

REACTIONS (6)
  - CEREBRAL PALSY [None]
  - MUSCLE SPASTICITY [None]
  - PARESIS [None]
  - PNEUMONIA [None]
  - SCAR [None]
  - SPASTIC DIPLEGIA [None]
